FAERS Safety Report 5733373-8 (Version None)
Quarter: 2008Q2

REPORT INFORMATION
  Report Type: 
  Country: None (occurrence: None)
  Receive Date: 20080509
  Receipt Date: 20080506
  Transmission Date: 20081010
  Serious: Yes (Other)
  Sender: FDA-Public Use
  Company Number: US-BAYER-200817230NA

PATIENT
  Age: 23 Year
  Sex: Female

DRUGS (3)
  1. MIRENA [Suspect]
     Indication: DRUG USE FOR UNKNOWN INDICATION
     Route: 015
     Dates: start: 20071017, end: 20080219
  2. LEVOTHYROXINE SODIUM [Concomitant]
  3. PREMARIN VAGINAL [Concomitant]

REACTIONS (1)
  - UTERINE RUPTURE [None]
